FAERS Safety Report 11135511 (Version 1)
Quarter: 2015Q2

REPORT INFORMATION
  Report Type: Spontaneous
  Country: US (occurrence: None)
  Receive Date: 20150522
  Receipt Date: 20150522
  Transmission Date: 20150821
  Serious: No
  Sender: FDA-Public Use
  Company Number: None

PATIENT
  Age: 54 Year
  Sex: Female
  Weight: 108.86 kg

DRUGS (7)
  1. TERBINAFINE [Suspect]
     Active Substance: TERBINAFINE
     Indication: ONYCHOMYCOSIS
     Dosage: 1 TABLET, ONCE DAILY, TAKEN BY MOUTH
     Route: 048
     Dates: start: 20150407, end: 20150521
  2. ASTRAGALUS??? [Concomitant]
  3. GARCINIA CAMBOGIA [Concomitant]
     Active Substance: HYDROXYCITRIC ACID
  4. HAIR SKIN + NAIL VITAMINS [Concomitant]
  5. TELOMERASE [Concomitant]
  6. GINKGO BILOBA [Concomitant]
     Active Substance: GINKGO
  7. BUPROPION HYDROCHLORIDE XL [Concomitant]
     Active Substance: BUPROPION HYDROCHLORIDE

REACTIONS (2)
  - Discomfort [None]
  - Sensitivity of teeth [None]

NARRATIVE: CASE EVENT DATE: 20150521
